FAERS Safety Report 5854298-3 (Version None)
Quarter: 2008Q3

REPORT INFORMATION
  Report Type: 
  Country: None (occurrence: None)
  Receive Date: 20080822
  Receipt Date: 20080812
  Transmission Date: 20090109
  Serious: Yes (Hospitalization, Other)
  Sender: FDA-Public Use
  Company Number: US-PFIZER INC-2004011059

PATIENT
  Sex: Male
  Weight: 118 kg

DRUGS (13)
  1. TIKOSYN [Suspect]
     Indication: ATRIAL FIBRILLATION
     Dosage: DAILY DOSE:500MCG-FREQ:BID
     Route: 048
     Dates: start: 20030202, end: 20080601
  2. METOPROLOL [Concomitant]
     Route: 048
  3. ALTACE [Concomitant]
     Route: 048
  4. AMARYL [Concomitant]
     Route: 048
  5. TRICOR [Concomitant]
     Route: 048
  6. WARFARIN SODIUM [Concomitant]
     Route: 048
  7. TAMSULOSIN HCL [Concomitant]
     Route: 048
  8. FOLIC ACID [Concomitant]
     Route: 048
  9. CRANBERRY [Concomitant]
     Route: 048
  10. PEPCID [Concomitant]
     Route: 048
  11. PROZAC [Concomitant]
     Route: 048
  12. GLIPIZIDE [Concomitant]
     Indication: DIABETES MELLITUS
  13. INSULIN [Concomitant]
     Indication: DIABETES MELLITUS

REACTIONS (7)
  - ARTERIOSCLEROSIS [None]
  - ATRIAL FIBRILLATION [None]
  - FEELING ABNORMAL [None]
  - PROSTATE INFECTION [None]
  - RENAL IMPAIRMENT [None]
  - SLEEP DISORDER [None]
  - WEIGHT INCREASED [None]
